FAERS Safety Report 17666924 (Version 1)
Quarter: 2020Q2

REPORT INFORMATION
  Report Type: Spontaneous
  Country: US (occurrence: US)
  Receive Date: 20200414
  Receipt Date: 20200414
  Transmission Date: 20200713
  Serious: No
  Sender: FDA-Public Use
  Company Number: US-JAZZ-2020-US-004482

PATIENT
  Sex: Female

DRUGS (9)
  1. SUNOSI [Suspect]
     Active Substance: SOLRIAMFETOL
     Indication: SLEEP APNOEA SYNDROME
     Dosage: 150 MILLIGRAM
     Dates: start: 202003
  2. ATORVASTATIN [Concomitant]
     Active Substance: ATORVASTATIN
     Indication: BLOOD CHOLESTEROL INCREASED
  3. PROCARDIA [Concomitant]
     Active Substance: NIFEDIPINE
     Indication: HYPERTENSION
  4. SUNOSI [Suspect]
     Active Substance: SOLRIAMFETOL
     Indication: SOMNOLENCE
     Dosage: 75 MILLIGRAM
     Route: 048
     Dates: start: 202003, end: 202003
  5. SYNTHROID [Concomitant]
     Active Substance: LEVOTHYROXINE SODIUM
     Indication: HYPOTHYROIDISM
  6. ZETIA [Concomitant]
     Active Substance: EZETIMIBE
     Indication: BLOOD CHOLESTEROL
  7. CARVEDILOL. [Concomitant]
     Active Substance: CARVEDILOL
  8. BABY ASPIRIN [Concomitant]
     Active Substance: ASPIRIN
  9. XANAX [Concomitant]
     Active Substance: ALPRAZOLAM
     Indication: SLEEP DISORDER

REACTIONS (1)
  - Drug dose titration not performed [Unknown]
